FAERS Safety Report 7616953-4 (Version None)
Quarter: 2011Q3

REPORT INFORMATION
  Report Type: 
  Country: None (occurrence: None)
  Receive Date: 20110718
  Receipt Date: 20110708
  Transmission Date: 20111222
  Serious: No
  Sender: FDA-Public Use
  Company Number: US-BIOGENIDEC-2011BI025548

PATIENT
  Age: 42 Year
  Sex: Female

DRUGS (3)
  1. PRIALT [Concomitant]
     Indication: PAIN
  2. DILAUDID [Concomitant]
     Indication: PAIN
  3. TYSABRI [Suspect]
     Indication: MULTIPLE SCLEROSIS
     Route: 042
     Dates: start: 20101223

REACTIONS (4)
  - LOSS OF CONTROL OF LEGS [None]
  - FALL [None]
  - FOOT FRACTURE [None]
  - SENSORY DISTURBANCE [None]
